FAERS Safety Report 17331906 (Version 3)
Quarter: 2020Q2

REPORT INFORMATION
  Report Type: Report from Study
  Country: BR (occurrence: BR)
  Receive Date: 20200127
  Receipt Date: 20200410
  Transmission Date: 20200713
  Serious: Yes (Other)
  Sender: FDA-Public Use
  Company Number: BR-UCBSA-2020002868

PATIENT
  Age: 52 Year
  Sex: Female
  Weight: 94 kg

DRUGS (16)
  1. CERTOLIZUMAB PEGOL RA [Suspect]
     Active Substance: CERTOLIZUMAB PEGOL
     Indication: RHEUMATOID ARTHRITIS
     Dosage: 400 MILLIGRAM, EV 30 DAYS
     Route: 058
     Dates: start: 20190514
  2. PREDNISONA [Suspect]
     Active Substance: PREDNISONE
     Dosage: 20 MILLIGRAM, AS NEEDED (PRN), IF PAINING
     Route: 048
  3. PREDNISONA [Suspect]
     Active Substance: PREDNISONE
     Indication: PAIN
     Dosage: TAKEN DAILY
     Route: 048
  4. FOLIC ACID. [Concomitant]
     Active Substance: FOLIC ACID
     Indication: PROPHYLAXIS
     Dosage: 1 TABLET WEEKLY
     Route: 048
  5. FLUOXETIN [Concomitant]
     Active Substance: FLUOXETINE HYDROCHLORIDE
     Indication: ANXIETY
     Dosage: 2 TABLETS PER DAY
     Route: 048
  6. FLUOXETIN [Concomitant]
     Active Substance: FLUOXETINE HYDROCHLORIDE
     Indication: FIBROMYALGIA
  7. CALCIUM+VITAMIN D3 [Concomitant]
     Active Substance: CALCIUM\CHOLECALCIFEROL
     Indication: BONE DISORDER
     Dosage: 1 DOSAGE FORM, ONCE DAILY (QD)
     Route: 048
     Dates: start: 2019
  8. SULFASALASIN [Concomitant]
     Active Substance: SULFASALAZINE
     Indication: RHEUMATOID ARTHRITIS
     Dosage: 4TABLETS PER DAY
     Route: 048
  9. MAREVAN [Concomitant]
     Active Substance: WARFARIN SODIUM
     Indication: ANTICOAGULANT THERAPY
     Dosage: 1 TABLET PER DAY
     Route: 048
     Dates: start: 2014
  10. LOSARTAN. [Concomitant]
     Active Substance: LOSARTAN
     Indication: HYPERTENSION
     Dosage: 0.5 DOSAGE FORM, ONCE DAILY (QD)
     Route: 048
  11. MAREVAN [Concomitant]
     Active Substance: WARFARIN SODIUM
     Indication: HYPERCOAGULATION
  12. HYDROCHLOROTHIAZIDE. [Concomitant]
     Active Substance: HYDROCHLOROTHIAZIDE
     Indication: HYPERTENSION
     Dosage: 1 TABLET PER DAY
     Route: 048
  13. DIPIRONA [Concomitant]
     Active Substance: METAMIZOLE
     Indication: PAIN
     Dosage: 500 MILLIGRAM, 4X/DAY (QID)
     Route: 048
  14. CERTOLIZUMAB PEGOL RA [Suspect]
     Active Substance: CERTOLIZUMAB PEGOL
     Dosage: 200 MILLIGRAM, EV 15 DAYS
     Route: 058
     Dates: start: 20190528
  15. OMEPRAZOLE. [Concomitant]
     Active Substance: OMEPRAZOLE
     Indication: ABDOMINAL PAIN UPPER
     Dosage: 1 TABLET PER DAY
     Route: 048
  16. COLLAGEN [Concomitant]
     Active Substance: COLLAGEN
     Indication: BONE DISORDER
     Dosage: ONE TEASPOON PER DAYDISSOLVED IN WATER

REACTIONS (6)
  - Rheumatoid arthritis [Recovering/Resolving]
  - Pneumonia [Recovering/Resolving]
  - Swelling [Unknown]
  - Malaise [Not Recovered/Not Resolved]
  - Fatigue [Not Recovered/Not Resolved]
  - Weight increased [Not Recovered/Not Resolved]

NARRATIVE: CASE EVENT DATE: 201905
